FAERS Safety Report 9691570 (Version 3)
Quarter: 2017Q1

REPORT INFORMATION
  Report Type: Spontaneous
  Country: US (occurrence: US)
  Receive Date: 20131115
  Receipt Date: 20170323
  Transmission Date: 20170429
  Serious: Yes (Other)
  Sender: FDA-Public Use
  Company Number: US-ROCHE-1303943

PATIENT
  Age: 36 Year
  Sex: Female
  Weight: 112.59 kg

DRUGS (10)
  1. VENTOLIN [Concomitant]
     Active Substance: ALBUTEROL SULFATE
     Dosage: 2 PUFFS EVERY 4 HOURS AS NEEDED
     Route: 065
  2. ALVESCO [Concomitant]
     Active Substance: CICLESONIDE
  3. SPIRIVA [Concomitant]
     Active Substance: TIOTROPIUM BROMIDE MONOHYDRATE
     Dosage: DAILY 10 DAYS AT NIGHT
     Route: 065
  4. EPIPEN [Concomitant]
     Active Substance: EPINEPHRINE
     Dosage: 0.3 MG/0.3 ML
     Route: 030
     Dates: start: 20130207, end: 20130522
  5. XOLAIR [Suspect]
     Active Substance: OMALIZUMAB
     Indication: ASTHMA
     Dosage: MOST RECENT INJECTION ON 16/OCT/2013.
     Route: 058
  6. EPIPEN [Concomitant]
     Active Substance: EPINEPHRINE
  7. BUDESONIDE. [Concomitant]
     Active Substance: BUDESONIDE
     Dosage: DOSE: 0.5 MG / 2 ML
     Route: 065
     Dates: start: 20130522
  8. SINGULAIR [Concomitant]
     Active Substance: MONTELUKAST SODIUM
  9. ALBUTEROL SULFATE. [Concomitant]
     Active Substance: ALBUTEROL SULFATE
  10. DULERA [Concomitant]
     Active Substance: FORMOTEROL FUMARATE DIHYDRATE\MOMETASONE FUROATE
     Dosage: 200 2 PUFFS BID
     Route: 065

REACTIONS (15)
  - Dyspnoea [Unknown]
  - Chest pain [Unknown]
  - Speech disorder [Unknown]
  - Asthma [Unknown]
  - Wheezing [Unknown]
  - Pharyngeal oedema [Unknown]
  - Fatigue [Unknown]
  - Throat tightness [Unknown]
  - Exercise tolerance decreased [Unknown]
  - Rhinitis allergic [Unknown]
  - Vomiting [Unknown]
  - Stridor [Unknown]
  - Chest discomfort [Unknown]
  - Drooling [Unknown]
  - Cough [Unknown]

NARRATIVE: CASE EVENT DATE: 20131112
